FAERS Safety Report 9733489 (Version 1)
Quarter: 2013Q4

REPORT INFORMATION
  Report Type: Spontaneous
  Country: US (occurrence: US)
  Receive Date: 20131205
  Receipt Date: 20131205
  Transmission Date: 20140711
  Serious: No
  Sender: FDA-Public Use
  Company Number: US-BAYER-2013-147080

PATIENT
  Age: 62 Year
  Sex: Female
  Weight: 70 kg

DRUGS (3)
  1. CLIMARA [Suspect]
     Indication: HOT FLUSH
     Dosage: 0.06 MG, ONCE
     Route: 062
     Dates: start: 2006
  2. LISINOPRIL [Concomitant]
     Indication: HYPERTENSION
     Dosage: 20 MG, QD
     Route: 048
     Dates: start: 201306
  3. DOXYCYCLINE [Concomitant]
     Indication: ROSACEA
     Dosage: 50 MG, ONCE
     Route: 048
     Dates: start: 2005

REACTIONS (3)
  - Hot flush [None]
  - Insomnia [None]
  - Product quality issue [None]
